FAERS Safety Report 15392217 (Version 2)
Quarter: 2018Q4

REPORT INFORMATION
  Report Type: Spontaneous
  Country: US (occurrence: US)
  Receive Date: 20180917
  Receipt Date: 20181128
  Transmission Date: 20190204
  Serious: Yes (Hospitalization, Other)
  Sender: FDA-Public Use
  Company Number: US-OTSUKA-2017_025942

PATIENT
  Sex: Male

DRUGS (3)
  1. ABILIFY [Suspect]
     Active Substance: ARIPIPRAZOLE
     Indication: DEPRESSION
     Dosage: UNK
     Route: 065
  2. ABILIFY [Suspect]
     Active Substance: ARIPIPRAZOLE
     Indication: ANXIETY
  3. ABILIFY [Suspect]
     Active Substance: ARIPIPRAZOLE
     Indication: BIPOLAR DISORDER
     Dosage: 20 MG, QD (QHS) X 90 DAYS
     Route: 048
     Dates: start: 200908, end: 201612

REACTIONS (19)
  - Loss of employment [Unknown]
  - Divorced [Unknown]
  - Product use in unapproved indication [Unknown]
  - Sexual dysfunction [Not Recovered/Not Resolved]
  - Hypersexuality [Unknown]
  - Economic problem [Unknown]
  - Condition aggravated [Unknown]
  - Impulsive behaviour [Unknown]
  - Emotional distress [Unknown]
  - Gambling disorder [Recovered/Resolved]
  - Pain [Unknown]
  - Impulse-control disorder [Unknown]
  - Suicide attempt [Not Recovered/Not Resolved]
  - Obsessive-compulsive disorder [Unknown]
  - Compulsive sexual behaviour [Not Recovered/Not Resolved]
  - Mental disorder [Unknown]
  - Suicidal ideation [Not Recovered/Not Resolved]
  - Injury [Unknown]
  - Compulsive shopping [Not Recovered/Not Resolved]

NARRATIVE: CASE EVENT DATE: 200909
